FAERS Safety Report 10147186 (Version 1)
Quarter: 2014Q2

REPORT INFORMATION
  Report Type: Spontaneous
  Country: JP (occurrence: JP)
  Receive Date: 20140501
  Receipt Date: 20140501
  Transmission Date: 20141212
  Serious: Yes (Other)
  Sender: FDA-Public Use
  Company Number: CHPA2014JP005827

PATIENT
  Sex: Male

DRUGS (2)
  1. NICOTINELL CHEWING GUM MINT [Suspect]
     Indication: SMOKING CESSATION THERAPY
     Dosage: 1 DF, UNK
     Route: 048
  2. ALEVIATIN [Concomitant]
     Indication: EPILEPSY
     Dosage: UNK UNK, TID
     Route: 048

REACTIONS (1)
  - Epilepsy [Unknown]
